FAERS Safety Report 9680074 (Version 3)
Quarter: 2014Q2

REPORT INFORMATION
  Report Type: Spontaneous
  Country: US (occurrence: US)
  Receive Date: 20131110
  Receipt Date: 20140520
  Transmission Date: 20141212
  Serious: Yes (Other)
  Sender: FDA-Public Use
  Company Number: US-AMGEN-USASP2013078792

PATIENT
  Age: 59 Year
  Sex: Female

DRUGS (2)
  1. ENBREL [Suspect]
     Indication: PSORIATIC ARTHROPATHY
     Dosage: 50 MG, QWK
     Route: 065
     Dates: start: 201308
  2. ENBREL [Suspect]
     Indication: PSORIASIS

REACTIONS (8)
  - Abdominal hernia [Not Recovered/Not Resolved]
  - Meniscus injury [Recovered/Resolved]
  - Liver disorder [Not Recovered/Not Resolved]
  - Diarrhoea [Not Recovered/Not Resolved]
  - Constipation [Not Recovered/Not Resolved]
  - Increased tendency to bruise [Unknown]
  - Hepatic steatosis [Not Recovered/Not Resolved]
  - Injection site pain [Not Recovered/Not Resolved]
